FAERS Safety Report 20713474 (Version 1)
Quarter: 2022Q2

REPORT INFORMATION
  Report Type: Spontaneous
  Country: US (occurrence: None)
  Receive Date: 20220414
  Receipt Date: 20220414
  Transmission Date: 20220721
  Serious: No
  Sender: FDA-Public Use
  Company Number: None

PATIENT
  Sex: Female

DRUGS (8)
  1. KESIMPTA [Suspect]
     Active Substance: OFATUMUMAB
     Indication: Multiple sclerosis
     Dosage: FREQUENCY : MONTHLY;?
     Route: 058
     Dates: start: 20220324
  2. BIOTIN [Concomitant]
     Active Substance: BIOTIN
  3. MELATONIN [Concomitant]
     Active Substance: MELATONIN
  4. DENAVIR [Concomitant]
     Active Substance: PENCICLOVIR
  5. VITAMIN D [Concomitant]
     Active Substance: VITAMIN D NOS
  6. VELTRIX [Concomitant]
     Active Substance: LIDOCAINE\MENTHOL
  7. FINACEA [Concomitant]
     Active Substance: AZELAIC ACID
  8. IRON\VITAMINS [Concomitant]
     Active Substance: IRON\VITAMINS

REACTIONS (6)
  - Drug ineffective [None]
  - Multiple sclerosis relapse [None]
  - Multiple sclerosis relapse [None]
  - Condition aggravated [None]
  - Back pain [None]
  - Intervertebral disc degeneration [None]
